FAERS Safety Report 5394206-5 (Version None)
Quarter: 2007Q3

REPORT INFORMATION
  Report Type: 
  Country: None (occurrence: None)
  Receive Date: 20070723
  Receipt Date: 20070417
  Transmission Date: 20080115
  Serious: No
  Sender: FDA-Public Use
  Company Number: A0647645A

PATIENT
  Age: 59 Year
  Sex: Female

DRUGS (12)
  1. AVANDIA [Suspect]
     Dosage: 8MG PER DAY
     Route: 048
     Dates: start: 20070320
  2. OMACOR [Concomitant]
  3. DIOVAN [Concomitant]
  4. PLAVIX [Concomitant]
  5. LIPITOR [Concomitant]
  6. CENESTIN [Concomitant]
  7. IRON [Concomitant]
  8. ALPHA LIPOIC ACID [Concomitant]
  9. ASPIRIN [Concomitant]
  10. TOPROL-XL [Concomitant]
  11. LEVOTHYROXINE SODIUM [Concomitant]
  12. GLIMEPIRIDE [Concomitant]

REACTIONS (1)
  - WEIGHT INCREASED [None]
